FAERS Safety Report 9742506 (Version 1)
Quarter: 2013Q4

REPORT INFORMATION
  Report Type: Spontaneous
  Country: US (occurrence: US)
  Receive Date: 20131210
  Receipt Date: 20131210
  Transmission Date: 20140711
  Serious: Yes (Hospitalization)
  Sender: FDA-Public Use
  Company Number: US-ENDO PHARMACEUTICALS INC.-PRED20130026

PATIENT
  Age: 54 Year
  Sex: Male
  Weight: 108.96 kg

DRUGS (7)
  1. PREDNISONE TABLETS [Suspect]
     Indication: GOUT
     Dosage: UNK
     Route: 065
     Dates: start: 2012, end: 2013
  2. PREDNISONE TABLETS [Suspect]
     Route: 048
     Dates: start: 20130402, end: 20130402
  3. PREDNISONE TABLETS [Suspect]
     Dosage: UNK
     Route: 048
     Dates: start: 20130403
  4. COLCRYS [Suspect]
     Indication: GOUT
     Dosage: 0.6MG
     Route: 048
  5. HYDROCODONE [Concomitant]
     Indication: GOUT
     Dosage: UNK
     Route: 065
  6. ULORIC [Concomitant]
     Indication: HYPERURICAEMIA
     Dosage: UNK
     Route: 048
     Dates: start: 2008
  7. ULORIC [Concomitant]
     Route: 048

REACTIONS (2)
  - Hiatus hernia [Recovered/Resolved]
  - Hiccups [Recovered/Resolved]
